FAERS Safety Report 18747811 (Version 10)
Quarter: 2023Q4

REPORT INFORMATION
  Report Type: Spontaneous
  Country: US (occurrence: US)
  Receive Date: 20210115
  Receipt Date: 20231026
  Transmission Date: 20240110
  Serious: Yes (Other)
  Sender: FDA-Public Use
  Company Number: US-PFIZER INC-2021024748

PATIENT
  Age: 83 Year
  Sex: Female

DRUGS (4)
  1. XELJANZ [Suspect]
     Active Substance: TOFACITINIB CITRATE
     Dosage: 5 MG 2 TIMES PER DAY M-W-F-SUN AND 1 TABLET DAILY TUES-THURS-SAT
     Route: 048
  2. XELJANZ [Suspect]
     Active Substance: TOFACITINIB CITRATE
     Dosage: 5 MG 1 TABLET A DAY ON TUESDAYS/THURSDAYS AND 2 TABLETS THE REST OF THE WEEK
     Route: 048
  3. XELJANZ [Suspect]
     Active Substance: TOFACITINIB CITRATE
     Dosage: 5 MG 1 TABLET TWICE DAILY ON MONDAY, WED AND FR/1 TABLET DAILY ON TUES, THURS, SAT AND SUN
     Route: 048
  4. MELOXICAM [Concomitant]
     Active Substance: MELOXICAM

REACTIONS (6)
  - Atrial fibrillation [Unknown]
  - Off label use [Unknown]
  - Hypoacusis [Unknown]
  - COVID-19 [Unknown]
  - Immune system disorder [Unknown]
  - Memory impairment [Unknown]
